FAERS Safety Report 5526855-5 (Version None)
Quarter: 2007Q4

REPORT INFORMATION
  Report Type: 
  Country: None (occurrence: None)
  Receive Date: 20071120
  Receipt Date: 20070425
  Transmission Date: 20080405
  Serious: Yes (Other)
  Sender: FDA-Public Use
  Company Number: 2007033515

PATIENT
  Age: 47 Year
  Sex: Male
  Weight: 92.9874 kg

DRUGS (15)
  1. TIKOSYN [Suspect]
     Indication: ATRIAL FIBRILLATION
     Dosage: 500 MCG (250 MCG, 2 IN 1 D)
     Dates: start: 20070422
  2. ATENOLOL [Concomitant]
  3. SYNTHROID [Concomitant]
  4. POTASSIUM (POTASSIUM) [Concomitant]
  5. LANTUS [Concomitant]
  6. AVANDIA [Concomitant]
  7. VITAMIN B12 [Concomitant]
  8. FOLIC ACID [Concomitant]
  9. WARFARIN SODIUM [Concomitant]
  10. VICODIN [Concomitant]
  11. ZETIA [Concomitant]
  12. GLUCOVANCE (GLIBENCLAMIDE, METFORMIN HYDROCLORIDE) [Concomitant]
  13. ALTACE [Concomitant]
  14. CRESTOR (ROSUVASTATINE) [Concomitant]
  15. NEXIUM [Concomitant]

REACTIONS (2)
  - CONSTIPATION [None]
  - DIARRHOEA [None]
